FAERS Safety Report 20807247 (Version 1)
Quarter: 2022Q2

REPORT INFORMATION
  Report Type: Spontaneous
  Country: US (occurrence: US)
  Receive Date: 20220510
  Receipt Date: 20220510
  Transmission Date: 20220720
  Serious: No
  Sender: FDA-Public Use
  Company Number: US-Calliditas-2022CAL00063

PATIENT
  Age: 24 Year
  Sex: Female

DRUGS (1)
  1. TARPEYO [Suspect]
     Active Substance: BUDESONIDE
     Indication: IgA nephropathy
     Dosage: 16MG (4 MG CAPSULES) ONCE DAILY
     Route: 050
     Dates: start: 20220326

REACTIONS (1)
  - Gastrooesophageal reflux disease [Unknown]
